FAERS Safety Report 15660699 (Version 1)
Quarter: 2018Q4

REPORT INFORMATION
  Report Type: Spontaneous
  Country: CA (occurrence: CA)
  Receive Date: 20181127
  Receipt Date: 20181127
  Transmission Date: 20190205
  Serious: Yes (Other)
  Sender: FDA-Public Use
  Company Number: CA-PFIZER INC-2018478393

PATIENT

DRUGS (1)
  1. XALATAN [Suspect]
     Active Substance: LATANOPROST
     Dosage: UNK

REACTIONS (5)
  - Herpes ophthalmic [Unknown]
  - Visual acuity reduced [Unknown]
  - Oral herpes [Unknown]
  - Pain [Unknown]
  - Vein rupture [Unknown]
